FAERS Safety Report 9352933 (Version 1)
Quarter: 2013Q2

REPORT INFORMATION
  Report Type: Spontaneous
  Country: US (occurrence: None)
  Receive Date: 20130614
  Receipt Date: 20130614
  Transmission Date: 20140414
  Serious: Yes (Other)
  Sender: FDA-Public Use
  Company Number: None

PATIENT
  Age: 50 Year
  Sex: Female
  Weight: 53.52 kg

DRUGS (9)
  1. MYSOLINE (PRIMIDONE) [Suspect]
     Indication: ESSENTIAL TREMOR
     Dosage: ONCE AT BEDTIME  BY MOUTH
     Route: 048
     Dates: start: 20121130, end: 20121222
  2. PROPRANALOL [Concomitant]
  3. TYLENOL [Concomitant]
  4. RAPID SLEEP PM [Concomitant]
  5. ALKA SELTZER FOR COLD/ALLERGY [Concomitant]
  6. CALCIUM [Concomitant]
  7. VITAMIN D [Concomitant]
  8. VITAMIN B [Concomitant]
  9. VITAMIN C [Concomitant]

REACTIONS (7)
  - Fatigue [None]
  - Eye swelling [None]
  - Skin discolouration [None]
  - Burning sensation [None]
  - Eye irritation [None]
  - Product substitution issue [None]
  - Product quality issue [None]
